FAERS Safety Report 6719143-2 (Version None)
Quarter: 2010Q2

REPORT INFORMATION
  Report Type: 
  Country: None (occurrence: None)
  Receive Date: 20100510
  Receipt Date: 20100510
  Transmission Date: 20101027
  Serious: Yes (Death)
  Sender: FDA-Public Use
  Company Number: None

PATIENT
  Age: 68 Year
  Sex: Male
  Weight: 72.9 kg

DRUGS (4)
  1. ZOMETA [Suspect]
     Indication: METASTASES TO BONE
     Dosage: 4MG EVERY 4WKS IV
     Route: 042
     Dates: start: 20091202
  2. ZOMETA [Suspect]
     Indication: METASTASES TO BONE
     Dosage: 4MG EVERY 4WKS IV
     Route: 042
     Dates: start: 20091230
  3. ZOMETA [Suspect]
     Indication: METASTASES TO BONE
     Dosage: 4MG EVERY 4WKS IV
     Route: 042
     Dates: start: 20100129
  4. ZOMETA [Suspect]
     Indication: METASTASES TO BONE
     Dosage: 4MG EVERY 4WKS IV
     Route: 042
     Dates: start: 20100226

REACTIONS (5)
  - ANAEMIA [None]
  - CARDIAC FAILURE [None]
  - PUPIL FIXED [None]
  - RESPIRATORY FAILURE [None]
  - SUBDURAL HAEMATOMA [None]
